FAERS Safety Report 7591373 (Version 3)
Quarter: 2013Q1

REPORT INFORMATION
  Report Type: Spontaneous
  Country: US (occurrence: US)
  Receive Date: 20100917
  Receipt Date: 20130125
  Transmission Date: 20140127
  Serious: No
  Sender: FDA-Public Use
  Company Number: US-ASTRAZENECA-2010SE18153

PATIENT
  Age: 61 Year
  Sex: Female
  Weight: 68 kg

DRUGS (2)
  1. SEROQUEL XR [Suspect]
     Route: 048
  2. SEROQUEL XR [Suspect]
     Route: 048

REACTIONS (6)
  - Insomnia [Unknown]
  - Malaise [Unknown]
  - Malaise [Unknown]
  - Influenza [Unknown]
  - Drug withdrawal syndrome [Unknown]
  - Drug dose omission [Unknown]
